FAERS Safety Report 23496334 (Version 1)
Quarter: 2024Q1

REPORT INFORMATION
  Report Type: Spontaneous
  Country: US (occurrence: None)
  Receive Date: 20240207
  Receipt Date: 20240207
  Transmission Date: 20240410
  Serious: No
  Sender: FDA-Public Use
  Company Number: US-ROCHE-3356398

PATIENT
  Age: 38 Year
  Sex: Female

DRUGS (4)
  1. XOLAIR [Suspect]
     Active Substance: OMALIZUMAB
     Indication: Urticaria
     Dosage: STRENGTH: 150 MG/ML
     Route: 058
     Dates: start: 202305
  2. XOLAIR [Suspect]
     Active Substance: OMALIZUMAB
  3. PLAQUENIL [Concomitant]
     Active Substance: HYDROXYCHLOROQUINE SULFATE
  4. TAKHZYRO [Concomitant]
     Active Substance: LANADELUMAB-FLYO

REACTIONS (9)
  - Swollen tongue [Unknown]
  - Eye swelling [Unknown]
  - Off label use [Unknown]
  - Hereditary angioedema [Unknown]
  - Burning sensation [Unknown]
  - Urticaria [Unknown]
  - Pharyngeal swelling [Unknown]
  - Ear swelling [Unknown]
  - Nasal injury [Unknown]

NARRATIVE: CASE EVENT DATE: 20230505
